FAERS Safety Report 16423843 (Version 1)
Quarter: 2019Q2

REPORT INFORMATION
  Report Type: Spontaneous
  Country: IT (occurrence: IT)
  Receive Date: 20190613
  Receipt Date: 20190613
  Transmission Date: 20190711
  Serious: Yes (Other)
  Sender: FDA-Public Use
  Company Number: IT-TEVA-2019-IT-1062041

PATIENT
  Sex: Male

DRUGS (2)
  1. LEVETIRACETAM TEVA [Suspect]
     Active Substance: LEVETIRACETAM
     Route: 065
     Dates: start: 201601
  2. LEVETIRACETAM TEVA [Suspect]
     Active Substance: LEVETIRACETAM
     Route: 065
     Dates: start: 2012

REACTIONS (4)
  - Aura [Not Recovered/Not Resolved]
  - Seizure [Not Recovered/Not Resolved]
  - Drug ineffective [Unknown]
  - Petit mal epilepsy [Not Recovered/Not Resolved]
